FAERS Safety Report 9633541 (Version 1)
Quarter: 2013Q4

REPORT INFORMATION
  Report Type: Report from Study
  Country: BR (occurrence: BR)
  Receive Date: 20131021
  Receipt Date: 20131021
  Transmission Date: 20140711
  Serious: No
  Sender: FDA-Public Use
  Company Number: PHHY2013BR117862

PATIENT
  Sex: Female

DRUGS (1)
  1. DIOVAN AMLO FIX [Suspect]
     Dosage: 1 DF (VALS 160 MG/AMLO 10 MG)  UNK

REACTIONS (3)
  - Shock [Unknown]
  - Feeling abnormal [Unknown]
  - Blood pressure abnormal [Unknown]
